FAERS Safety Report 7296861-1 (Version None)
Quarter: 2011Q1

REPORT INFORMATION
  Report Type: 
  Country: None (occurrence: None)
  Receive Date: 20110216
  Receipt Date: 20110208
  Transmission Date: 20110831
  Serious: Yes (Other)
  Sender: FDA-Public Use
  Company Number: GB-JNJFOC-20110202376

PATIENT
  Age: 91 Year
  Sex: Female
  Weight: 70 kg

DRUGS (9)
  1. PARACETAMOL [Suspect]
     Route: 065
  2. ALBUTEROL [Concomitant]
  3. PARACETAMOL [Suspect]
     Indication: PRODUCT USED FOR UNKNOWN INDICATION
     Route: 065
  4. TIOTROPIUM BROMIDE [Concomitant]
  5. SENNA [Concomitant]
  6. LEVOTHYROXINE SODIUM [Concomitant]
  7. ADCAL [Concomitant]
  8. TRAMADOL [Suspect]
     Indication: BACK PAIN
     Route: 048
  9. BUDESONIDE [Concomitant]

REACTIONS (2)
  - HEPATITIS [None]
  - LIVER FUNCTION TEST ABNORMAL [None]
